FAERS Safety Report 6324599-3 (Version None)
Quarter: 2009Q3

REPORT INFORMATION
  Report Type: 
  Country: None (occurrence: None)
  Receive Date: 20090820
  Receipt Date: 20090803
  Transmission Date: 20100115
  Serious: Yes (Hospitalization)
  Sender: FDA-Public Use
  Company Number: JPI-P-008269

PATIENT
  Age: 28 Year
  Sex: Female

DRUGS (2)
  1. FLUVOXAMINE MALEATE [Suspect]
     Indication: DEPRESSION
     Dosage: 100 MG, D, ORAL  50MG,D, ORAL
     Route: 048
  2. PARACETAMOL, PROPYPHENAZONE AND CAFFEINE [Suspect]
     Indication: DRUG USE FOR UNKNOWN INDICATION

REACTIONS (13)
  - ALKALOSIS [None]
  - CONFUSIONAL STATE [None]
  - DIARRHOEA [None]
  - HYPERHIDROSIS [None]
  - HYPOKALAEMIA [None]
  - HYPOTONIA [None]
  - INSOMNIA [None]
  - MUSCULAR WEAKNESS [None]
  - MYOCLONIC EPILEPSY [None]
  - PARAESTHESIA [None]
  - SEROTONIN SYNDROME [None]
  - SINUS TACHYCARDIA [None]
  - TREMOR [None]
